FAERS Safety Report 16923425 (Version 1)
Quarter: 2019Q4

REPORT INFORMATION
  Report Type: Spontaneous
  Country: US (occurrence: US)
  Receive Date: 20191016
  Receipt Date: 20191016
  Transmission Date: 20200122
  Serious: No
  Sender: FDA-Public Use
  Company Number: US-AUROBINDO-AUR-APL-2019-004414

PATIENT

DRUGS (1)
  1. CLINDAMYCIN HYDROCHLORIDE CAPSULES USP 300 MG [Suspect]
     Active Substance: CLINDAMYCIN HYDROCHLORIDE
     Indication: SURGERY
     Dosage: 2 DOSAGE FORM, DAILY
     Route: 065

REACTIONS (1)
  - Muscle discomfort [Unknown]
